FAERS Safety Report 4869919-1 (Version None)
Quarter: 2005Q4

REPORT INFORMATION
  Report Type: 
  Country: None (occurrence: None)
  Receive Date: 20051230
  Receipt Date: 20050927
  Transmission Date: 20060501
  Serious: Yes (Hospitalization, Disabling)
  Sender: FDA-Public Use
  Company Number: US-MERCK-0509USA04671

PATIENT
  Age: 34 Year
  Sex: Female
  Weight: 68 kg

DRUGS (2)
  1. VIOXX [Suspect]
     Indication: NECK PAIN
     Route: 048
     Dates: start: 20020124, end: 20020202
  2. HYDROCODONE BITARTRATE [Concomitant]
     Route: 065

REACTIONS (5)
  - CEREBRAL INFARCTION [None]
  - HYPERTENSION [None]
  - INTRACRANIAL HAEMATOMA [None]
  - ISCHAEMIC STROKE [None]
  - PRE-ECLAMPSIA [None]
